FAERS Safety Report 5381150-2 (Version None)
Quarter: 2007Q3

REPORT INFORMATION
  Report Type: 
  Country: None (occurrence: None)
  Receive Date: 20070706
  Receipt Date: 20070625
  Transmission Date: 20080115
  Serious: Yes (Hospitalization)
  Sender: FDA-Public Use
  Company Number: IN-PFIZER INC-2007051717

PATIENT
  Age: 25 Year
  Sex: Female

DRUGS (5)
  1. ZIPRASIDONE (CAPS) [Suspect]
     Indication: SCHIZOPHRENIA, PARANOID TYPE
  2. CLONAZEPAM [Suspect]
  3. RISPERIDONE [Suspect]
  4. DIVALPROEX SODIUM [Suspect]
  5. TRIHEXYPHENIDYL HCL [Suspect]

REACTIONS (9)
  - ELECTROCARDIOGRAM QT PROLONGED [None]
  - HYPOREFLEXIA [None]
  - HYPOTONIA [None]
  - INSOMNIA [None]
  - INTENTIONAL OVERDOSE [None]
  - LOSS OF CONSCIOUSNESS [None]
  - MIOSIS [None]
  - RESPIRATORY DEPRESSION [None]
  - SUICIDE ATTEMPT [None]
